FAERS Safety Report 20599665 (Version 2)
Quarter: 2022Q2

REPORT INFORMATION
  Report Type: Report from Study
  Country: BR (occurrence: BR)
  Receive Date: 20220316
  Receipt Date: 20220419
  Transmission Date: 20220721
  Serious: Yes (Disabling, Other)
  Sender: FDA-Public Use
  Company Number: BR-ABBVIE-22K-020-4316437-00

PATIENT
  Sex: Female
  Weight: 62 kg

DRUGS (2)
  1. RINVOQ [Suspect]
     Active Substance: UPADACITINIB
     Indication: Rheumatoid arthritis
     Route: 048
     Dates: end: 2022
  2. RINVOQ [Suspect]
     Active Substance: UPADACITINIB
     Route: 048
     Dates: start: 20220409

REACTIONS (6)
  - Dysgraphia [Recovered/Resolved]
  - Impaired work ability [Recovered/Resolved]
  - Pain [Recovering/Resolving]
  - Pain in extremity [Recovering/Resolving]
  - Arrhythmia [Recovering/Resolving]
  - Blood cholesterol increased [Recovering/Resolving]

NARRATIVE: CASE EVENT DATE: 20220101
